FAERS Safety Report 7559708-1 (Version None)
Quarter: 2011Q2

REPORT INFORMATION
  Report Type: 
  Country: None (occurrence: None)
  Receive Date: 20110621
  Receipt Date: 20110609
  Transmission Date: 20111010
  Serious: Yes (Other)
  Sender: FDA-Public Use
  Company Number: CA-ELI_LILLY_AND_COMPANY-CA201106002551

PATIENT
  Sex: Female

DRUGS (14)
  1. LORAZEPAM [Concomitant]
  2. MIRTAZAPINE [Concomitant]
  3. TRAZODONE HCL [Concomitant]
  4. ZYPREXA ZYDIS [Suspect]
     Dosage: 10 MG, UNK
  5. APO-TRIMIP [Concomitant]
  6. FLURAZEPAM [Concomitant]
  7. ESCITALOPRAM [Concomitant]
  8. SEROQUEL [Concomitant]
  9. LITHIUM CARBONATE [Concomitant]
  10. CRESTOR [Concomitant]
  11. ZYPREXA ZYDIS [Suspect]
     Indication: BIPOLAR DISORDER
     Dosage: 5 MG, UNK
     Dates: start: 20050326
  12. ZYPREXA [Suspect]
     Indication: BIPOLAR DISORDER
     Dosage: 5 MG, UNK
  13. BUPROPION HCL [Concomitant]
  14. METOPROLOL TARTRATE [Concomitant]

REACTIONS (2)
  - TYPE 2 DIABETES MELLITUS [None]
  - WEIGHT INCREASED [None]
